FAERS Safety Report 6719074-8 (Version None)
Quarter: 2010Q2

REPORT INFORMATION
  Report Type: 
  Country: None (occurrence: None)
  Receive Date: 20100507
  Receipt Date: 20100430
  Transmission Date: 20101027
  Serious: No
  Sender: FDA-Public Use
  Company Number: DSA_42122_2009

PATIENT
  Sex: Female
  Weight: 73.4827 kg

DRUGS (14)
  1. XENAZINE [Suspect]
     Indication: CHOREA
     Dosage: 12.5 MG  QD, ORAL; 12.5 MG BID ORAL, 12.5 MG TID ORAL,12.5 MG BID ORAL, 12.5 MG QD ORAL
     Route: 048
     Dates: start: 20090327, end: 20090430
  2. XENAZINE [Suspect]
     Indication: CHOREA
     Dosage: 12.5 MG  QD, ORAL; 12.5 MG BID ORAL, 12.5 MG TID ORAL,12.5 MG BID ORAL, 12.5 MG QD ORAL
     Route: 048
     Dates: start: 20090501, end: 20091123
  3. XENAZINE [Suspect]
     Indication: CHOREA
     Dosage: 12.5 MG  QD, ORAL; 12.5 MG BID ORAL, 12.5 MG TID ORAL,12.5 MG BID ORAL, 12.5 MG QD ORAL
     Route: 048
     Dates: start: 20091124, end: 20100101
  4. XENAZINE [Suspect]
     Indication: CHOREA
     Dosage: 12.5 MG  QD, ORAL; 12.5 MG BID ORAL, 12.5 MG TID ORAL,12.5 MG BID ORAL, 12.5 MG QD ORAL
     Route: 048
     Dates: start: 20100101, end: 20100406
  5. XENAZINE [Suspect]
     Indication: CHOREA
     Dosage: 12.5 MG  QD, ORAL; 12.5 MG BID ORAL, 12.5 MG TID ORAL,12.5 MG BID ORAL, 12.5 MG QD ORAL
     Route: 048
     Dates: start: 20100407
  6. AVAPRO [Concomitant]
  7. FERROUS SULFATE TAB [Concomitant]
  8. LIPITOR [Concomitant]
  9. CLONAZEPAM [Concomitant]
  10. SINGULAIR [Concomitant]
  11. FLUTICASONE PROPIONATE [Concomitant]
  12. MILK OF MAGNESIA TAB [Concomitant]
  13. MUCINEX [Concomitant]
  14. ASPIRIN [Concomitant]

REACTIONS (10)
  - AKATHISIA [None]
  - BLEPHAROSPASM [None]
  - CONDITION AGGRAVATED [None]
  - CONSTIPATION [None]
  - FATIGUE [None]
  - INSOMNIA [None]
  - JAW OPERATION [None]
  - MUSCULOSKELETAL STIFFNESS [None]
  - URINE OUTPUT DECREASED [None]
  - WEIGHT DECREASED [None]
